FAERS Safety Report 8490313-9 (Version None)
Quarter: 2012Q3

REPORT INFORMATION
  Report Type: 
  Country: None (occurrence: None)
  Receive Date: 20120705
  Receipt Date: 20120628
  Transmission Date: 20120928
  Serious: Yes (Life-Threatening, Hospitalization, Other)
  Sender: FDA-Public Use
  Company Number: ES-JNJFOC-20120604044

PATIENT
  Age: 68 Year
  Sex: Male
  Weight: 76 kg

DRUGS (5)
  1. CLOPIDOGREL [Concomitant]
     Indication: CARDIAC DISORDER
     Route: 048
     Dates: start: 20100101
  2. REMICADE [Suspect]
     Indication: COLITIS ULCERATIVE
     Route: 042
     Dates: start: 20110603, end: 20120419
  3. ATROVENT [Concomitant]
     Indication: BRONCHITIS CHRONIC
     Route: 055
     Dates: start: 20100101
  4. MERCAPTOPURINE [Suspect]
     Indication: COLITIS ULCERATIVE
     Route: 048
     Dates: start: 20100101, end: 20120501
  5. DILTIAZEM HYDROCHOLORIDE [Concomitant]
     Indication: HYPERTENSION
     Route: 048
     Dates: start: 20090101

REACTIONS (1)
  - B-CELL LYMPHOMA [None]
